FAERS Safety Report 8883324 (Version 1)
Quarter: 2012Q4

REPORT INFORMATION
  Report Type: 
  Country: US (occurrence: US)
  Receive Date: 20121102
  Receipt Date: 20121102
  Transmission Date: 20130627
  Serious: Yes (Other)
  Sender: FDA-Public Use
  Company Number: CHPA2012US022547

PATIENT
  Age: 74 Year
  Sex: Male

DRUGS (8)
  1. NUPERCAINAL HEMORRHOIDAL/ANES OINTMENT [Suspect]
     Indication: HAEMORRHOIDS
     Dosage: Unk, as needed
     Route: 061
     Dates: start: 1992
  2. METOPROLOL [Concomitant]
     Indication: HYPERTENSION
  3. ASPIRIN [Concomitant]
     Indication: CARDIAC DISORDER
     Dosage: 81 mg daily
     Route: 048
  4. TERAZOSIN [Concomitant]
     Indication: PROSTATOMEGALY
  5. DAILY MULTIVITAMIN [Concomitant]
  6. TYLENOL [Concomitant]
     Indication: HEADACHE
  7. HCTZ [Concomitant]
     Indication: HYPERTENSION
     Dosage: 12.5 mg, Unk
  8. LISINOPRIL [Concomitant]
     Indication: HYPERTENSION

REACTIONS (6)
  - Colon cancer [Recovered/Resolved]
  - Prostate cancer [Unknown]
  - Diabetes mellitus [Not Recovered/Not Resolved]
  - Blood cholesterol increased [Recovered/Resolved]
  - Urinary tract disorder [Not Recovered/Not Resolved]
  - Expired drug administered [Unknown]
